FAERS Safety Report 4311077-6 (Version None)
Quarter: 2004Q1

REPORT INFORMATION
  Report Type: 
  Country: None (occurrence: None)
  Receive Date: 20040302
  Receipt Date: 20040216
  Transmission Date: 20041129
  Serious: No
  Sender: FDA-Public Use
  Company Number: S03-CAN-05079-01

PATIENT
  Age: 86 Year
  Sex: Female
  Weight: 63.5036 kg

DRUGS (9)
  1. TIAZAC [Suspect]
     Indication: ARRHYTHMIA
     Dosage: 180 MG QD PO
     Route: 048
     Dates: start: 20031009, end: 20031029
  2. CARDIZEM [Suspect]
     Indication: CARDIAC FAILURE
     Dates: start: 19880101
  3. CARDIZEM [Suspect]
     Indication: CARDIAC FAILURE
     Dosage: 120 MG QD PO
     Route: 048
     Dates: start: 20031030
  4. DIGOXIN [Concomitant]
  5. LASIX [Concomitant]
  6. COUMADIN [Concomitant]
  7. PRAVACHOL [Concomitant]
  8. IMOVANE (ZOPICLONE) [Concomitant]
  9. FOLIC ACID [Concomitant]

REACTIONS (5)
  - ABDOMINAL DISTENSION [None]
  - BLOOD PRESSURE INCREASED [None]
  - HEART RATE INCREASED [None]
  - JOINT SWELLING [None]
  - OEDEMA PERIPHERAL [None]
